FAERS Safety Report 7227102-9 (Version None)
Quarter: 2011Q1

REPORT INFORMATION
  Report Type: 
  Country: None (occurrence: None)
  Receive Date: 20110114
  Receipt Date: 20110112
  Transmission Date: 20110831
  Serious: Yes (Hospitalization)
  Sender: FDA-Public Use
  Company Number: FR-ROCHE-751508

PATIENT
  Sex: Male
  Weight: 54 kg

DRUGS (13)
  1. RIBAVIRIN [Suspect]
     Route: 048
     Dates: start: 20091116
  2. TENOFOVIR DISOPROXIL FUMARATE [Concomitant]
     Dates: start: 20071121
  3. LEXOMIL [Concomitant]
     Dates: start: 20071121
  4. VIAGRA [Concomitant]
     Dosage: TDD:25 MG EVERY 2 DAYS
     Dates: start: 20091116
  5. TEMESTA [Concomitant]
     Dates: start: 20090720
  6. EMTRICITABINE [Concomitant]
     Dates: start: 20071121
  7. RALTEGRAVIR [Concomitant]
     Dates: start: 20000411
  8. SYMBICORT [Concomitant]
     Dosage: TOTAL DAILY DOSE: 2 SPRAY
     Dates: start: 20100201
  9. PEGINTERFERON ALFA-2A [Suspect]
     Route: 058
     Dates: start: 20091116
  10. SUBUTEX [Concomitant]
     Dates: start: 20100309
  11. PEGINTERFERON ALFA-2A [Suspect]
     Route: 058
     Dates: start: 20100503
  12. SPIRIVA [Concomitant]
     Dates: start: 20100806
  13. SUBUTEX [Concomitant]
     Dates: start: 20090720

REACTIONS (1)
  - CACHEXIA [None]
